FAERS Safety Report 7284546-7 (Version None)
Quarter: 2011Q1

REPORT INFORMATION
  Report Type: 
  Country: None (occurrence: None)
  Receive Date: 20110209
  Receipt Date: 20110126
  Transmission Date: 20110831
  Serious: Yes (Hospitalization)
  Sender: FDA-Public Use
  Company Number: JP-BAYER-201012190BYL

PATIENT
  Sex: Female
  Weight: 64 kg

DRUGS (9)
  1. AVELOX [Suspect]
     Indication: PNEUMONIA BACTERIAL
     Route: 048
     Dates: start: 20100430, end: 20100502
  2. BIOFERMIN R [Concomitant]
     Route: 048
     Dates: start: 20100430, end: 20100502
  3. VOLTAREN [Concomitant]
     Indication: PYREXIA
  4. MICARDIS [Suspect]
     Indication: HYPERTENSION
     Route: 048
     Dates: start: 20080801
  5. AMARYL [Suspect]
     Indication: DIABETES MELLITUS
     Route: 048
     Dates: start: 20090324
  6. BASEN [Suspect]
     Indication: DIABETES MELLITUS
     Route: 048
     Dates: start: 20090324
  7. ZOSYN [Suspect]
     Indication: PNEUMONIA BACTERIAL
     Route: 041
     Dates: start: 20100430, end: 20100506
  8. VOLTAREN [Concomitant]
     Indication: PAIN
  9. VOLTAREN [Concomitant]
     Indication: ADENOCARCINOMA
     Route: 054
     Dates: start: 20100430

REACTIONS (2)
  - HYPOGLYCAEMIA [None]
  - DEPRESSED LEVEL OF CONSCIOUSNESS [None]
